FAERS Safety Report 7779666-4 (Version None)
Quarter: 2011Q3

REPORT INFORMATION
  Report Type: 
  Country: None (occurrence: None)
  Receive Date: 20110927
  Receipt Date: 20100608
  Transmission Date: 20111222
  Serious: Yes (Death)
  Sender: FDA-Public Use
  Company Number: US-BAYER-201032519NA

PATIENT
  Sex: Female
  Weight: 46.259 kg

DRUGS (39)
  1. MAGNEVIST [Suspect]
     Dosage: 12 ML, ONCE
     Dates: start: 20010907, end: 20010907
  2. GADOLINIUM IN UNSPECIFIED DRUG [Suspect]
     Dosage: UNK
     Dates: start: 20020227, end: 20020227
  3. RENAGEL [Concomitant]
  4. DECADRON [Concomitant]
  5. RIFAMPIN [Concomitant]
  6. NEPHROCAPS [Concomitant]
  7. OMNISCAN [Suspect]
     Indication: PRODUCT USED FOR UNKNOWN INDICATION
     Dosage: 12 ML, ONCE
     Dates: start: 20010910, end: 20010910
  8. ASPIRIN [Concomitant]
  9. MECLIZINE [Concomitant]
  10. VICODIN [Concomitant]
  11. PERCOCET [Concomitant]
  12. CELEXA [Concomitant]
  13. PEPCID [Concomitant]
  14. OXYCONTIN [Concomitant]
  15. TEMAZEPAM [Concomitant]
  16. OMNISCAN [Suspect]
     Indication: ANGIOGRAM
  17. NEPHROVITE [VIT C,VIT H,B5,B12,B9,B3,B6,B2,B1 HCL] [Concomitant]
  18. BENADRYL [Concomitant]
  19. VITAMIN TAB [Concomitant]
  20. PAXIL [Concomitant]
  21. PREDNISONE [Concomitant]
  22. GADOLINIUM IN UNSPECIFIED DRUG [Suspect]
     Dosage: 10 ML, ONCE
     Dates: start: 20010927, end: 20010927
  23. LISINOPRIL [Concomitant]
  24. PRINIVIL [Concomitant]
  25. AMBIEN [Concomitant]
  26. NEURONTIN [Concomitant]
  27. GADOLINIUM IN UNSPECIFIED DRUG [Suspect]
     Dosage: UNK, ONCE
     Dates: start: 20011129, end: 20011129
  28. PROCRIT [Concomitant]
  29. CLONIDINE [Concomitant]
  30. DILAUDID [Concomitant]
  31. GADOLINIUM IN UNSPECIFIED DRUG [Suspect]
     Indication: NUCLEAR MAGNETIC RESONANCE IMAGING BRAIN
     Dosage: 15 ML, ONCE
     Dates: start: 20010918, end: 20010918
  32. SENSIPAR [Concomitant]
  33. EPOGEN [Concomitant]
  34. DEXAMETHASONE [Concomitant]
  35. OMNISCAN [Suspect]
     Indication: NUCLEAR MAGNETIC RESONANCE IMAGING BRAIN
  36. TUMS [CALCIUM CARBONATE] [Concomitant]
  37. PHOSLO [Concomitant]
  38. ACETAMINOPHEN [Concomitant]
  39. LEVAQUIN [Concomitant]

REACTIONS (6)
  - PAIN [None]
  - NEPHROGENIC SYSTEMIC FIBROSIS [None]
  - SKIN INDURATION [None]
  - SKIN HYPERPIGMENTATION [None]
  - MUSCLE CONTRACTURE [None]
  - GENERAL PHYSICAL HEALTH DETERIORATION [None]
